FAERS Safety Report 4355117-7 (Version None)
Quarter: 2004Q2

REPORT INFORMATION
  Report Type: 
  Country: None (occurrence: None)
  Receive Date: 20040504
  Receipt Date: 20030611
  Transmission Date: 20050107
  Serious: Yes (Hospitalization)
  Sender: FDA-Public Use
  Company Number: 200300738

PATIENT
  Age: 4 Year
  Sex: Female
  Weight: 14.9687 kg

DRUGS (18)
  1. CHILDREN'S MOTRIN [Suspect]
     Indication: PHARYNGOLARYNGEAL PAIN
     Dosage: PO
     Route: 048
     Dates: start: 20020607, end: 20020617
  2. CHILDREN'S MOTRIN [Suspect]
     Indication: PYREXIA
     Dosage: PO
     Route: 048
     Dates: start: 20020607, end: 20020617
  3. BENADRYL (DIPHENHYDRAMINE HCL) [Concomitant]
  4. ZOFRAN [Concomitant]
  5. TRIAMCINOLONE CREAM 0.1% [Concomitant]
  6. EUCERIN [Concomitant]
  7. HYDROCORTISONE CREAM 1% [Concomitant]
  8. ATARAX [Concomitant]
  9. BACTROBAN (MUPIROCIN OINT) [Concomitant]
  10. DICLOXACILLIN [Concomitant]
  11. KEFLEX (CEPHALEXIN 125MG/5ML) [Concomitant]
  12. SOLU-MEDROL [Concomitant]
  13. NAFCIL (NAFCILLIN) [Concomitant]
  14. ZYRTEC [Concomitant]
  15. PRINIVIL (LISINOPRIL 1MG/1ML) [Concomitant]
  16. PREDNISONE [Concomitant]
  17. PEPCID (FAMOTIDINE 40 MG/5 ML) [Concomitant]
  18. TYLENOL [Concomitant]

REACTIONS (38)
  - ABDOMINAL DISTENSION [None]
  - ACTIVATED PARTIAL THROMBOPLASTIN TIME PROLONGED [None]
  - ALANINE AMINOTRANSFERASE INCREASED [None]
  - ANOREXIA [None]
  - ASPARTATE AMINOTRANSFERASE INCREASED [None]
  - BACTERIAL INFECTION [None]
  - BLOOD ALKALINE PHOSPHATASE INCREASED [None]
  - BLOOD CHLORIDE DECREASED [None]
  - BLOOD MAGNESIUM INCREASED [None]
  - BLOOD PH DECREASED [None]
  - BLOOD POTASSIUM INCREASED [None]
  - BLOOD SODIUM DECREASED [None]
  - CONJUNCTIVITIS [None]
  - CULTURE URINE POSITIVE [None]
  - DERMATITIS CONTACT [None]
  - DERMATITIS EXFOLIATIVE [None]
  - EOSINOPHIL COUNT INCREASED [None]
  - EYE SWELLING [None]
  - HAEMATOCRIT DECREASED [None]
  - HAEMOGLOBIN DECREASED [None]
  - HYPERSENSITIVITY [None]
  - INTERNATIONAL NORMALISED RATIO DECREASED [None]
  - LETHARGY [None]
  - LIP DRY [None]
  - LYMPHADENOPATHY [None]
  - NEPHRITIS INTERSTITIAL [None]
  - PLATELET COUNT INCREASED [None]
  - PROTHROMBIN TIME PROLONGED [None]
  - RASH ERYTHEMATOUS [None]
  - RENAL DISORDER [None]
  - STAPHYLOCOCCAL IMPETIGO [None]
  - STAPHYLOCOCCAL INFECTION [None]
  - STEVENS-JOHNSON SYNDROME [None]
  - SWELLING FACE [None]
  - VIRAL INFECTION [None]
  - VIRAL PHARYNGITIS [None]
  - VIRAL RASH [None]
  - WHITE BLOOD CELL COUNT INCREASED [None]
